FAERS Safety Report 8522815-0 (Version None)
Quarter: 2012Q3

REPORT INFORMATION
  Report Type: 
  Country: None (occurrence: None)
  Receive Date: 20120720
  Receipt Date: 20120710
  Transmission Date: 20120928
  Serious: Yes (Hospitalization, Disabling, Other)
  Sender: FDA-Public Use
  Company Number: CO-AMGEN-COLSP2012043614

PATIENT
  Age: 79 Year
  Sex: Female

DRUGS (6)
  1. ENBREL [Suspect]
     Indication: RHEUMATOID ARTHRITIS
     Dosage: 50 MG, WEEKLY
     Route: 065
     Dates: start: 20091001, end: 20091201
  2. OLMESARTAN MEDOXOMIL AND HYDROCHLOROTHIZIDE [Suspect]
     Indication: HYPERTENSION
     Dosage: 40/12.5 MG, 1X/DAY
     Route: 040
     Dates: start: 20060101
  3. PREDNISOLONE [Concomitant]
     Indication: PAIN
     Dosage: 5 MG, 1X/DAY, AS NEEDED
     Route: 048
     Dates: start: 20000101, end: 20091001
  4. ENBREL [Suspect]
     Dosage: 50 MG, WEEKLY
     Route: 065
     Dates: start: 20100701, end: 20100901
  5. METHOTREXATE [Suspect]
     Indication: ARTHRITIS
     Dosage: UNKNOWN
     Route: 048
     Dates: start: 20000101
  6. PREDNISOLONE [Concomitant]
     Indication: INFLAMMATION
     Dosage: UNK

REACTIONS (9)
  - BLOOD PRESSURE INCREASED [None]
  - HEADACHE [None]
  - TRANSAMINASES ABNORMAL [None]
  - VARICOPHLEBITIS [None]
  - GAIT DISTURBANCE [None]
  - DRUG INEFFECTIVE [None]
  - GASTRITIS [None]
  - URINARY TRACT INFECTION [None]
  - ARTHRITIS [None]
